FAERS Safety Report 9112749 (Version 1)
Quarter: 2013Q1

REPORT INFORMATION
  Report Type: Spontaneous
  Country: US (occurrence: US)
  Receive Date: 20130211
  Receipt Date: 20130211
  Transmission Date: 20140127
  Serious: Yes (Hospitalization, Other)
  Sender: FDA-Public Use
  Company Number: US-ROXANE LABORATORIES, INC.-2012-EU-02955GD

PATIENT
  Age: 79 Year
  Sex: Female

DRUGS (3)
  1. CLONIDINE [Suspect]
     Dosage: 0.9 MG
     Route: 048
  2. DIGOXIN [Suspect]
     Dosage: 0.125 MG
     Route: 048
  3. DILTIAZEM [Suspect]
     Dosage: 360 MG
     Route: 048

REACTIONS (9)
  - Sinus bradycardia [Unknown]
  - Sinus arrhythmia [Unknown]
  - Atrioventricular block second degree [Unknown]
  - Nodal rhythm [Unknown]
  - Left atrial dilatation [Unknown]
  - Incorrect dose administered [Unknown]
  - Presyncope [Unknown]
  - Asthenia [Unknown]
  - Malaise [Unknown]
